FAERS Safety Report 21200275 (Version 1)
Quarter: 2022Q3

REPORT INFORMATION
  Report Type: Spontaneous
  Country: US (occurrence: US)
  Receive Date: 20220811
  Receipt Date: 20220811
  Transmission Date: 20221027
  Serious: No
  Sender: FDA-Public Use
  Company Number: US-BAYER-2022A110554

PATIENT
  Age: 76 Year
  Sex: Male

DRUGS (5)
  1. DOCUSATE SODIUM [Suspect]
     Active Substance: DOCUSATE SODIUM
     Indication: Ileus
     Dosage: UNK
  2. POLYETHYLENE GLYCOL 3350 [Suspect]
     Active Substance: POLYETHYLENE GLYCOL 3350
     Indication: Ileus
  3. SENNA [Suspect]
     Active Substance: SENNA LEAF\SENNOSIDES\SENNOSIDES A AND B
  4. BISACODYL [Suspect]
     Active Substance: BISACODYL
  5. MAGNESIUM CITRATE [Suspect]
     Active Substance: MAGNESIUM CITRATE

REACTIONS (2)
  - Off label use [None]
  - Drug effective for unapproved indication [None]
